FAERS Safety Report 11103404 (Version 3)
Quarter: 2015Q4

REPORT INFORMATION
  Report Type: Report from Study
  Country: DE (occurrence: CO)
  Receive Date: 20150511
  Receipt Date: 20151020
  Transmission Date: 20160304
  Serious: Yes (Other)
  Sender: FDA-Public Use
  Company Number: DE-ACTELION-A-NJ2015-117777

PATIENT
  Age: 51 Year
  Sex: Female

DRUGS (6)
  1. VENTAVIS [Suspect]
     Active Substance: ILOPROST
     Indication: PULMONARY HYPERTENSION
     Dosage: 10 MCG/ML, 6X DAILY
     Route: 055
     Dates: start: 20131114
  2. THYROXINE [Concomitant]
     Active Substance: LEVOTHYROXINE
     Dosage: UNK
  3. FUROSEMIDE. [Concomitant]
     Active Substance: FUROSEMIDE
  4. METOPROLOL [Concomitant]
     Active Substance: METOPROLOL
     Dosage: UNK
  5. ESPIRONOLACTONA [Concomitant]
     Active Substance: SPIRONOLACTONE
     Dosage: UNK
  6. ACETAMINOPHEN. [Concomitant]
     Active Substance: ACETAMINOPHEN

REACTIONS (7)
  - Supraventricular tachycardia [Unknown]
  - Ascites [Not Recovered/Not Resolved]
  - Hypotension [Not Recovered/Not Resolved]
  - Breath odour [Not Recovered/Not Resolved]
  - Cerebrovascular accident [Unknown]
  - Peripheral swelling [Not Recovered/Not Resolved]
  - Cardiac failure [Not Recovered/Not Resolved]

NARRATIVE: CASE EVENT DATE: 20131114
